FAERS Safety Report 18478007 (Version 2)
Quarter: 2025Q2

REPORT INFORMATION
  Report Type: Spontaneous
  Country: US (occurrence: US)
  Receive Date: 20201108
  Receipt Date: 20250627
  Transmission Date: 20250717
  Serious: Yes (Hospitalization, Other)
  Sender: AUROBINDO
  Company Number: US-MLMSERVICE-20201020-2538055-1

PATIENT
  Age: 55 Year
  Sex: Male

DRUGS (2)
  1. MELOXICAM [Suspect]
     Active Substance: MELOXICAM
     Indication: Pain
     Route: 065
  2. MELOXICAM [Suspect]
     Active Substance: MELOXICAM
     Indication: Arthritis

REACTIONS (2)
  - Atrial fibrillation [Recovered/Resolved]
  - Angina pectoris [Recovered/Resolved]
